FAERS Safety Report 12494995 (Version 1)
Quarter: 2016Q2

REPORT INFORMATION
  Report Type: Other
  Country: DE (occurrence: DE)
  Receive Date: 20160624
  Receipt Date: 20160624
  Transmission Date: 20160815
  Serious: Yes (Other)
  Sender: FDA-Public Use
  Company Number: DE-CIPLA LTD.-2016DE08069

PATIENT

DRUGS (2)
  1. GEMCITABINE [Suspect]
     Active Substance: GEMCITABINE\GEMCITABINE HYDROCHLORIDE
     Indication: CHEMOTHERAPY
     Dosage: 1000 MG/M2, UNK
     Route: 065
     Dates: start: 20130318
  2. PACLITAXEL. [Suspect]
     Active Substance: PACLITAXEL
     Indication: CHEMOTHERAPY
     Dosage: 200 MG/M2, UNK
     Route: 065
     Dates: start: 20130318

REACTIONS (7)
  - Adverse event [Unknown]
  - Pain [Unknown]
  - Odynophagia [Unknown]
  - Impaired quality of life [Unknown]
  - Disease progression [Unknown]
  - Malignant neoplasm progression [Unknown]
  - Mucosal inflammation [Unknown]

NARRATIVE: CASE EVENT DATE: 20130328
